FAERS Safety Report 24110699 (Version 1)
Quarter: 2024Q3

REPORT INFORMATION
  Report Type: Spontaneous
  Country: CH (occurrence: CH)
  Receive Date: 20240718
  Receipt Date: 20240718
  Transmission Date: 20241016
  Serious: Yes (Death)
  Sender: ORGANON
  Company Number: None

PATIENT
  Sex: Female
  Weight: 2.15 kg

DRUGS (5)
  1. EBASTINE [Suspect]
     Active Substance: EBASTINE
     Indication: Polymorphic eruption of pregnancy
     Dosage: 5 MILLIGRAM, Q8H
     Route: 064
     Dates: start: 20230921, end: 20231004
  2. EBASTINE [Suspect]
     Active Substance: EBASTINE
     Dosage: 5 MILLIGRAM, Q12H
     Route: 064
     Dates: start: 20231005, end: 20231011
  3. EBASTINE [Suspect]
     Active Substance: EBASTINE
     Dosage: 5 MILLIGRAM, QD
     Route: 064
     Dates: start: 20231012, end: 20231018
  4. RIVAROXABAN [Suspect]
     Active Substance: RIVAROXABAN
     Indication: Prophylaxis
     Dosage: 10 MILLIGRAM (DRUG EXPOSURE VIA MOTHER)
     Route: 064
     Dates: start: 20230607, end: 20230607
  5. RIVAROXABAN [Suspect]
     Active Substance: RIVAROXABAN
     Dosage: 10 MILLIGRAM, 1 TOTAL (DRUG EXPOSURE VIA MOTHER)
     Route: 064
     Dates: start: 20230621, end: 20230621

REACTIONS (2)
  - Foetal death [Fatal]
  - Foetal exposure during pregnancy [Recovered/Resolved]

NARRATIVE: CASE EVENT DATE: 20230607
